FAERS Safety Report 7768468-0 (Version None)
Quarter: 2011Q3

REPORT INFORMATION
  Report Type: 
  Country: None (occurrence: None)
  Receive Date: 20110922
  Receipt Date: 20090717
  Transmission Date: 20111222
  Serious: Yes (Hospitalization, Other)
  Sender: FDA-Public Use
  Company Number: US-ASTRAZENECA-2009UW11465

PATIENT
  Age: 47 Year
  Sex: Male
  Weight: 99.8 kg

DRUGS (32)
  1. SEROQUEL [Suspect]
     Dosage: 1000 MG
     Route: 048
     Dates: start: 19980101, end: 20010911
  2. SEROQUEL [Suspect]
     Dosage: 1000 MG
     Route: 048
     Dates: start: 19980101, end: 20010911
  3. SEROQUEL [Suspect]
     Dosage: 100-400 MG
     Route: 048
     Dates: start: 20000416
  4. SEROQUEL [Suspect]
     Dosage: 300 MG TO 400 MG
     Route: 048
     Dates: start: 20050401
  5. STELAZINE [Concomitant]
     Dosage: 5 MG TO 10 MG
     Dates: start: 20000101, end: 20060101
  6. SEROQUEL [Suspect]
     Indication: DEPRESSION
     Dosage: 100 MG TO 800 MG
     Route: 048
     Dates: start: 19980101
  7. RISPERDAL [Concomitant]
  8. HALDOL [Concomitant]
     Dates: start: 20020101
  9. STELAZINE [Concomitant]
     Dates: start: 20000416
  10. TRILAFON/TRIAVIL [Concomitant]
     Dates: start: 19800101
  11. CLONAZEPAM [Concomitant]
     Dates: start: 20000416
  12. ABILIFY [Concomitant]
     Dates: start: 20020101
  13. GEODON [Concomitant]
     Dates: start: 20081013
  14. ZOLOFT [Concomitant]
     Dates: start: 20000416
  15. REMERON [Concomitant]
     Dates: start: 20010101, end: 20080101
  16. ARTANE [Concomitant]
     Dates: start: 20081013
  17. SEROQUEL [Suspect]
     Indication: BIPOLAR DISORDER
     Dosage: 100 MG TO 800 MG
     Route: 048
     Dates: start: 19980101
  18. SEROQUEL [Suspect]
     Indication: SCHIZOPHRENIA
     Dosage: 100 MG TO 800 MG
     Route: 048
     Dates: start: 19980101
  19. SEROQUEL [Suspect]
     Dosage: 1000 MG
     Route: 048
     Dates: start: 19980101, end: 20010911
  20. SEROQUEL [Suspect]
     Dosage: 100-400 MG
     Route: 048
     Dates: start: 20000416
  21. SEROQUEL [Suspect]
     Dosage: 100-400 MG
     Route: 048
     Dates: start: 20000416
  22. SEROQUEL [Suspect]
     Dosage: 300 MG TO 400 MG
     Route: 048
     Dates: start: 20050401
  23. GEODON [Concomitant]
     Dosage: 60 MG TO 120 MG
     Dates: start: 20030101, end: 20080101
  24. SEROQUEL [Suspect]
     Dosage: 1000 MG
     Route: 048
     Dates: start: 19980101, end: 20010911
  25. SEROQUEL [Suspect]
     Dosage: 100-400 MG
     Route: 048
     Dates: start: 20000416
  26. ZOLOFT [Concomitant]
     Dates: start: 20010101, end: 20080101
  27. SEROQUEL [Suspect]
     Indication: POST-TRAUMATIC STRESS DISORDER
     Dosage: 100 MG TO 800 MG
     Route: 048
     Dates: start: 19980101
  28. SEROQUEL [Suspect]
     Dosage: 300 MG TO 400 MG
     Route: 048
     Dates: start: 20050401
  29. REMERON [Concomitant]
     Dosage: 15-30 MG
     Dates: start: 20010210
  30. SEROQUEL [Suspect]
     Dosage: 300 MG TO 400 MG
     Route: 048
     Dates: start: 20050401
  31. CLONAZEPAM [Concomitant]
     Dates: start: 20010101, end: 20080101
  32. AMANTADINE HCL [Concomitant]
     Dates: start: 20081013

REACTIONS (8)
  - HYPERGLYCAEMIA [None]
  - OBESITY [None]
  - MOVEMENT DISORDER [None]
  - DIABETES MELLITUS [None]
  - TARDIVE DYSKINESIA [None]
  - TYPE 1 DIABETES MELLITUS [None]
  - DYSKINESIA [None]
  - DIABETIC KETOACIDOSIS [None]
